FAERS Safety Report 8306601-2 (Version None)
Quarter: 2012Q2

REPORT INFORMATION
  Report Type: 
  Country: None (occurrence: None)
  Receive Date: 20120424
  Receipt Date: 20120412
  Transmission Date: 20120825
  Serious: Yes (Hospitalization, Other)
  Sender: FDA-Public Use
  Company Number: US-CELGENEUS-163-21880-12031477

PATIENT
  Sex: Male
  Weight: 84.444 kg

DRUGS (6)
  1. REVLIMID [Suspect]
     Indication: MULTIPLE MYELOMA
     Dosage: 5 MILLIGRAM
     Route: 048
     Dates: start: 20110919
  2. ARAVA [Concomitant]
     Route: 065
  3. ENBREL [Concomitant]
     Route: 065
  4. PLAQUENIL [Concomitant]
     Dosage: 200 MILLIGRAM
     Route: 065
  5. MINOCYCLINE HCL [Concomitant]
     Dosage: 100 MILLIGRAM
     Route: 065
  6. AREDIA [Concomitant]
     Route: 065

REACTIONS (1)
  - ARTHROPATHY [None]
